FAERS Safety Report 11414340 (Version 3)
Quarter: 2017Q3

REPORT INFORMATION
  Report Type: Report from Study
  Country: None (occurrence: NL)
  Receive Date: 20150824
  Receipt Date: 20170801
  Transmission Date: 20171127
  Serious: Yes (Other)
  Sender: FDA-Public Use
  Company Number: NL-ABBVIE-15P-114-1357321-00

PATIENT
  Age: 77 Year
  Sex: Male
  Weight: 79 kg

DRUGS (11)
  1. LUCRIN [Suspect]
     Active Substance: LEUPROLIDE ACETATE
     Route: 058
  2. LUCRIN [Suspect]
     Active Substance: LEUPROLIDE ACETATE
     Route: 058
  3. FENETICILLIN [Concomitant]
     Indication: PRODUCT USED FOR UNKNOWN INDICATION
     Route: 048
  4. CYPROTERON [Concomitant]
     Indication: PRODUCT USED FOR UNKNOWN INDICATION
     Route: 048
  5. LUCRIN [Suspect]
     Active Substance: LEUPROLIDE ACETATE
     Route: 058
  6. OXAZEPAM. [Concomitant]
     Active Substance: OXAZEPAM
     Indication: PRODUCT USED FOR UNKNOWN INDICATION
     Route: 048
  7. LUCRIN [Suspect]
     Active Substance: LEUPROLIDE ACETATE
     Indication: PROSTATE CANCER
     Route: 058
     Dates: start: 20110304
  8. XTANDI [Concomitant]
     Active Substance: ENZALUTAMIDE
     Indication: PROSTATIC SPECIFIC ANTIGEN INCREASED
     Route: 048
     Dates: start: 201505
  9. LUCRIN [Suspect]
     Active Substance: LEUPROLIDE ACETATE
     Route: 058
  10. BICALUTAMIDE. [Suspect]
     Active Substance: BICALUTAMIDE
     Indication: PROSTATE CANCER
     Route: 048
     Dates: end: 2015
  11. CARBASALAATCALCIUM [Concomitant]
     Active Substance: CARBASPIRIN
     Indication: PRODUCT USED FOR UNKNOWN INDICATION
     Route: 048

REACTIONS (5)
  - Prostatic specific antigen increased [Not Recovered/Not Resolved]
  - Hot flush [Recovered/Resolved]
  - Waist circumference increased [Not Recovered/Not Resolved]
  - Metastases to lymph nodes [Not Recovered/Not Resolved]
  - Gynaecomastia [Not Recovered/Not Resolved]

NARRATIVE: CASE EVENT DATE: 201103
